FAERS Safety Report 8362361-0 (Version None)
Quarter: 2012Q2

REPORT INFORMATION
  Report Type: 
  Country: None (occurrence: None)
  Receive Date: 20120516
  Receipt Date: 20120515
  Transmission Date: 20120825
  Serious: Yes (Hospitalization, Other)
  Sender: FDA-Public Use
  Company Number: FR-BIOGENIDEC-2011BI046718

PATIENT
  Age: 38 Year
  Sex: Male

DRUGS (10)
  1. TEMAZEPAM [Concomitant]
     Indication: AGITATION
     Dates: end: 20100322
  2. ALFUZOSIN HCL [Concomitant]
     Indication: BLADDER DYSFUNCTION
     Dates: start: 20100628
  3. AVONEX [Suspect]
     Indication: MULTIPLE SCLEROSIS
     Route: 030
     Dates: start: 20010901, end: 20080701
  4. CLONAZEPAM [Concomitant]
     Indication: AGITATION
     Dates: start: 20100322
  5. ESCITALOPRAM [Concomitant]
     Dates: start: 20100101
  6. STEROIDS [Concomitant]
     Indication: MULTIPLE SCLEROSIS RELAPSE
  7. REBIF [Concomitant]
     Indication: MULTIPLE SCLEROSIS
     Route: 058
     Dates: start: 20090401, end: 20110501
  8. THIAMINE HYDROCHLORIDE [Concomitant]
  9. DANTRIUM [Concomitant]
     Indication: MUSCLE SPASTICITY
     Dates: start: 20110224
  10. NEURONTIN [Concomitant]
     Indication: PARAESTHESIA
     Dates: start: 20100628

REACTIONS (3)
  - MUSCLE CONTRACTIONS INVOLUNTARY [None]
  - MUSCLE SPASMS [None]
  - VASCULITIS [None]
